FAERS Safety Report 12847423 (Version 1)
Quarter: 2016Q4

REPORT INFORMATION
  Report Type: Spontaneous
  Country: US (occurrence: US)
  Receive Date: 20161014
  Receipt Date: 20161014
  Transmission Date: 20170207
  Serious: Yes (Other)
  Sender: FDA-Public Use
  Company Number: US-HQ SPECIALTY-US-2016INT000914

PATIENT
  Age: 24 Week
  Sex: Male
  Weight: .73 kg

DRUGS (12)
  1. DEXMEDETOMIDINE HYDROCHLORIDE. [Suspect]
     Active Substance: DEXMEDETOMIDINE HYDROCHLORIDE
     Dosage: 2.4 UG/KG (0.1 UG/KG,1 IN 1 H)
     Route: 042
  2. LORAZEPAM. [Suspect]
     Active Substance: LORAZEPAM
     Indication: SEDATION
     Dosage: EVERY 2 HOURS (0.1 MG/KG,AS NECESSARY)
     Route: 042
  3. DEXMEDETOMIDINE HYDROCHLORIDE. [Suspect]
     Active Substance: DEXMEDETOMIDINE HYDROCHLORIDE
     Dosage: 8.4 UG/KG (0.35 UG/KG,1 IN 1 H)
     Route: 042
  4. DEXMEDETOMIDINE HYDROCHLORIDE. [Suspect]
     Active Substance: DEXMEDETOMIDINE HYDROCHLORIDE
     Dosage: 6 UG/KG (0.25 UG/KG,1 IN 1 H)
     Route: 042
  5. DEXMEDETOMIDINE HYDROCHLORIDE. [Suspect]
     Active Substance: DEXMEDETOMIDINE HYDROCHLORIDE
     Dosage: 16.8 UG/KG (0.7 UG/KG,1 IN 1 H)
     Route: 042
  6. LORAZEPAM. [Suspect]
     Active Substance: LORAZEPAM
     Dosage: EVERY 4 HOURS (0.6 MG/KG,AS NECESSARY)
     Route: 042
  7. DEXMEDETOMIDINE HYDROCHLORIDE. [Suspect]
     Active Substance: DEXMEDETOMIDINE HYDROCHLORIDE
     Dosage: 8.4 UG/KG (0.35 UG/KG,1 IN 1 H)
     Route: 042
  8. DEXMEDETOMIDINE HYDROCHLORIDE. [Suspect]
     Active Substance: DEXMEDETOMIDINE HYDROCHLORIDE
     Dosage: 9.6 UG/KG (0.4 UG/KG,1 IN 1 H)
     Route: 042
  9. FENTANYL. [Suspect]
     Active Substance: FENTANYL
     Indication: PAIN
     Dosage: 240 UG/KG (10 UG/KG,1 IN 1 H)
     Route: 042
  10. DEXMEDETOMIDINE HYDROCHLORIDE. [Suspect]
     Active Substance: DEXMEDETOMIDINE HYDROCHLORIDE
     Dosage: CONTINUOUS INFUSION (0.25 UG/KG,1 IN 1 H)
     Route: 042
  11. FENTANYL. [Suspect]
     Active Substance: FENTANYL
     Dosage: EVERY 8 HOURS (1 UG/KG,1 H)
     Route: 042
  12. DEXMEDETOMIDINE HYDROCHLORIDE. [Suspect]
     Active Substance: DEXMEDETOMIDINE HYDROCHLORIDE
     Indication: SEDATION
     Dosage: (0.5 UG/KG)
     Route: 042

REACTIONS (3)
  - Product use issue [Unknown]
  - Neonatal hypoxia [Recovered/Resolved]
  - Hypotension [Recovered/Resolved]
